FAERS Safety Report 8416163-7 (Version None)
Quarter: 2012Q2

REPORT INFORMATION
  Report Type: 
  Country: None (occurrence: None)
  Receive Date: 20120606
  Receipt Date: 20120601
  Transmission Date: 20120825
  Serious: Yes (Death)
  Sender: FDA-Public Use
  Company Number: US-PFIZER INC-2012132573

PATIENT
  Sex: Female

DRUGS (10)
  1. PROMETHAZINE [Concomitant]
     Dosage: UNK
  2. OXYCONTIN [Concomitant]
     Dosage: UNK
  3. DEXILANT [Concomitant]
     Dosage: UNK
  4. COLACE [Concomitant]
     Dosage: UNK
  5. MARINOL [Concomitant]
     Dosage: UNK
  6. DILAUDID [Concomitant]
     Dosage: UNK
  7. KEPPRA [Concomitant]
     Dosage: UNK
  8. XALKORI [Suspect]
     Indication: LUNG NEOPLASM MALIGNANT
     Dosage: 250 MG, 2X/DAY
     Route: 048
     Dates: start: 20120405, end: 20120501
  9. ZOFRAN [Concomitant]
     Dosage: UNK
  10. XANAX [Concomitant]
     Dosage: UNK

REACTIONS (1)
  - DEATH [None]
